FAERS Safety Report 4475137-1 (Version None)
Quarter: 2004Q4

REPORT INFORMATION
  Report Type: 
  Country: None (occurrence: None)
  Receive Date: 20041013
  Receipt Date: 20041013
  Transmission Date: 20050328
  Serious: Yes (Hospitalization)
  Sender: FDA-Public Use
  Company Number: None

PATIENT
  Age: 68 Year
  Sex: Female

DRUGS (14)
  1. LOPRESSOR [Suspect]
     Indication: HYPERTENSION
     Dosage: 50MG BID ORAL
     Route: 048
  2. AVANDIA [Concomitant]
  3. KLONOPIN [Concomitant]
  4. LASIX [Concomitant]
  5. POTASSIUM CHLORIDE [Concomitant]
  6. LEVOTHYROXINE-SYNTHYROID [Concomitant]
  7. . [Concomitant]
  8. METFORMIN HCL [Concomitant]
  9. . [Concomitant]
  10. LANTUS [Concomitant]
  11. COUMADIN [Concomitant]
  12. METOPROLOL-LOPRESSOR [Concomitant]
  13. LIPITOR [Concomitant]
  14. LOTENSIN [Concomitant]

REACTIONS (5)
  - ASTHENIA [None]
  - BRADYCARDIA [None]
  - DYSPNOEA EXERTIONAL [None]
  - FATIGUE [None]
  - ORTHOPNOEA [None]
